FAERS Safety Report 21159197 (Version 2)
Quarter: 2022Q3

REPORT INFORMATION
  Report Type: Spontaneous
  Country: US (occurrence: US)
  Receive Date: 20220802
  Receipt Date: 20220822
  Transmission Date: 20221027
  Serious: Yes (Hospitalization)
  Sender: FDA-Public Use
  Company Number: US-BRISTOL-MYERS SQUIBB COMPANY-2022-081112

PATIENT
  Age: 73 Year
  Sex: Female

DRUGS (1)
  1. REVLIMID [Suspect]
     Active Substance: LENALIDOMIDE
     Indication: Plasma cell myeloma
     Dosage: ON DAYS 1-14 EVERY 21 DAYS
     Route: 048
     Dates: start: 20220707

REACTIONS (4)
  - Fatigue [Unknown]
  - Pyrexia [Unknown]
  - Rash [Recovered/Resolved]
  - Off label use [Unknown]
